FAERS Safety Report 10415337 (Version 1)
Quarter: 2014Q3

REPORT INFORMATION
  Report Type: Spontaneous
  Country: US (occurrence: None)
  Receive Date: 20140826
  Receipt Date: 20140826
  Transmission Date: 20150326
  Serious: Yes (Other)
  Sender: FDA-Public Use
  Company Number: US-ZYDUS-004145

PATIENT
  Age: 16 Year
  Sex: Female

DRUGS (1)
  1. LEVETIRACETAM (LEVETIRACETAM) [Suspect]
     Active Substance: LEVETIRACETAM
     Indication: EPILEPSY

REACTIONS (3)
  - Convulsion [None]
  - Maternal exposure during pregnancy [None]
  - Therapeutic response decreased [None]
